FAERS Safety Report 10467522 (Version 1)
Quarter: 2014Q3

REPORT INFORMATION
  Report Type: Spontaneous
  Country: US (occurrence: US)
  Receive Date: 20140922
  Receipt Date: 20140922
  Transmission Date: 20150326
  Serious: No
  Sender: FDA-Public Use
  Company Number: US-TARO-2014P1002979

PATIENT
  Age: 65 Year
  Sex: Male
  Weight: 113.4 kg

DRUGS (3)
  1. FLUOCINONIDE GEL USP 0.05% [Suspect]
     Active Substance: FLUOCINONIDE
     Indication: LICHEN PLANUS
     Dosage: BID
     Route: 002
     Dates: start: 20140401
  2. LISINOPRIL. [Concomitant]
     Active Substance: LISINOPRIL
     Route: 048
  3. CLOTRIMAZOLE TROCHE [Concomitant]
     Active Substance: CLOTRIMAZOLE
     Dosage: 10 MG

REACTIONS (3)
  - Muscle spasms [Not Recovered/Not Resolved]
  - Irritable bowel syndrome [Not Recovered/Not Resolved]
  - Incorrect route of drug administration [Not Recovered/Not Resolved]

NARRATIVE: CASE EVENT DATE: 20140401
